FAERS Safety Report 8562049-7 (Version None)
Quarter: 2012Q3

REPORT INFORMATION
  Report Type: 
  Country: None (occurrence: None)
  Receive Date: 20120802
  Receipt Date: 20120702
  Transmission Date: 20120928
  Serious: No
  Sender: FDA-Public Use
  Company Number: US-AMGEN-USASP2012040808

PATIENT
  Age: 58 Year
  Sex: Female

DRUGS (1)
  1. ENBREL [Suspect]
     Indication: ANKYLOSING SPONDYLITIS
     Dosage: 50 MG, QWK
     Dates: start: 20120328

REACTIONS (4)
  - PHARYNGITIS [None]
  - ARTHRALGIA [None]
  - SPINAL PAIN [None]
  - UPPER RESPIRATORY TRACT INFECTION [None]
